FAERS Safety Report 8588277-2 (Version None)
Quarter: 2012Q3

REPORT INFORMATION
  Report Type: 
  Country: None (occurrence: None)
  Receive Date: 20120813
  Receipt Date: 20120802
  Transmission Date: 20120928
  Serious: Yes (Hospitalization, Other)
  Sender: FDA-Public Use
  Company Number: MX-SANOFI-AVENTIS-2012SA055310

PATIENT
  Age: 56 Year
  Sex: Female
  Weight: 68 kg

DRUGS (4)
  1. METFORMIN HYDROCHLORIDE/PIOGLITAZONE HYDROCHLORIDE [Concomitant]
     Route: 048
  2. LANTUS [Suspect]
     Route: 058
     Dates: start: 20100101
  3. ROSUVASTATIN [Concomitant]
     Route: 048
  4. GLUCOPHAGE [Concomitant]
     Indication: TYPE 2 DIABETES MELLITUS
     Route: 048

REACTIONS (5)
  - FALL [None]
  - TIBIA FRACTURE [None]
  - HYPERGLYCAEMIA [None]
  - HYPERTENSION [None]
  - OSTEOARTHRITIS [None]
